FAERS Safety Report 13310421 (Version 3)
Quarter: 2018Q2

REPORT INFORMATION
  Report Type: Spontaneous
  Country: US (occurrence: US)
  Receive Date: 20170309
  Receipt Date: 20180611
  Transmission Date: 20180711
  Serious: No
  Sender: FDA-Public Use
  Company Number: US-JNJFOC-20170202639

PATIENT
  Age: 9 Year
  Sex: Male

DRUGS (2)
  1. RISPERDAL [Suspect]
     Active Substance: RISPERIDONE
     Indication: AGGRESSION
     Route: 048
     Dates: start: 200410
  2. RISPERDAL [Suspect]
     Active Substance: RISPERIDONE
     Indication: ANGER
     Route: 048
     Dates: start: 200410

REACTIONS (4)
  - Somnolence [Recovering/Resolving]
  - Gynaecomastia [Unknown]
  - Feeling abnormal [Recovering/Resolving]
  - Abnormal weight gain [Unknown]

NARRATIVE: CASE EVENT DATE: 200410
